FAERS Safety Report 7248868-8 (Version None)
Quarter: 2011Q1

REPORT INFORMATION
  Report Type: 
  Country: None (occurrence: None)
  Receive Date: 20110128
  Receipt Date: 20110118
  Transmission Date: 20110831
  Serious: Yes (Hospitalization)
  Sender: FDA-Public Use
  Company Number: US-US-EMD SERONO, INC.-7037069

PATIENT
  Sex: Female
  Weight: 72 kg

DRUGS (1)
  1. REBIF [Suspect]
     Indication: MULTIPLE SCLEROSIS
     Route: 058
     Dates: start: 20070416

REACTIONS (3)
  - INJECTION SITE PAIN [None]
  - CYST [None]
  - INTERVERTEBRAL DISC CALCIFICATION [None]
